FAERS Safety Report 7230021-5 (Version None)
Quarter: 2011Q1

REPORT INFORMATION
  Report Type: 
  Country: None (occurrence: None)
  Receive Date: 20110117
  Receipt Date: 20110107
  Transmission Date: 20110831
  Serious: Yes (Hospitalization)
  Sender: FDA-Public Use
  Company Number: AR-AMGEN-ARGSP2010012183

PATIENT

DRUGS (1)
  1. ENBREL [Suspect]
     Indication: PRODUCT USED FOR UNKNOWN INDICATION
     Dosage: UNK
     Dates: start: 20100917, end: 20101201

REACTIONS (6)
  - RASH MACULAR [None]
  - FLUID RETENTION [None]
  - SKIN INDURATION [None]
  - HYPERSENSITIVITY [None]
  - PRURITUS GENERALISED [None]
  - DRY MOUTH [None]
